FAERS Safety Report 6040214-0 (Version None)
Quarter: 2009Q1

REPORT INFORMATION
  Report Type: 
  Country: None (occurrence: None)
  Receive Date: 20090116
  Receipt Date: 20080116
  Transmission Date: 20090719
  Serious: No
  Sender: FDA-Public Use
  Company Number: US-BRISTOL-MYERS SQUIBB COMPANY-14043384

PATIENT

DRUGS (1)
  1. ABILIFY [Suspect]
     Dosage: DOSE REDUCED FROM 30MG TO 10MG
     Route: 048

REACTIONS (1)
  - INCORRECT DOSE ADMINISTERED [None]
